FAERS Safety Report 7269644-6 (Version None)
Quarter: 2011Q1

REPORT INFORMATION
  Report Type: 
  Country: None (occurrence: None)
  Receive Date: 20110202
  Receipt Date: 20110124
  Transmission Date: 20110831
  Serious: Yes (Hospitalization)
  Sender: FDA-Public Use
  Company Number: JP-SANOFI-AVENTIS-2010SA078128

PATIENT
  Age: 65 Year
  Sex: Female
  Weight: 52 kg

DRUGS (2)
  1. MYSLEE [Suspect]
     Route: 048
     Dates: start: 20100223, end: 20100223
  2. MYSLEE [Suspect]
     Route: 048
     Dates: start: 20090319, end: 20090327

REACTIONS (4)
  - ERYTHEMA MULTIFORME [None]
  - ECZEMA [None]
  - GENERALISED ERYTHEMA [None]
  - LIP OEDEMA [None]
